FAERS Safety Report 8596892-5 (Version None)
Quarter: 2012Q3

REPORT INFORMATION
  Report Type: 
  Country: None (occurrence: None)
  Receive Date: 20120815
  Receipt Date: 20120724
  Transmission Date: 20120928
  Serious: Yes (Death, Hospitalization)
  Sender: FDA-Public Use
  Company Number: BE-BAXTER-2012BAX014230

PATIENT
  Sex: Female
  Weight: 94.9 kg

DRUGS (26)
  1. IFOSFAMIDE [Suspect]
     Indication: DIFFUSE LARGE B-CELL LYMPHOMA STAGE IV
     Route: 042
     Dates: start: 20061019
  2. ETOPOSIDE [Suspect]
     Route: 065
     Dates: start: 20061108
  3. CORDARONE [Concomitant]
     Route: 048
  4. RITUXIMAB [Suspect]
     Route: 065
     Dates: start: 20061108
  5. ETOPOSIDE [Suspect]
     Indication: DIFFUSE LARGE B-CELL LYMPHOMA STAGE IV
     Route: 065
     Dates: start: 20061018
  6. COMBIVENT [Concomitant]
     Route: 065
  7. ZANTAC [Concomitant]
     Dosage: 300
     Route: 048
  8. ZANTAC [Concomitant]
  9. RITUXIMAB [Suspect]
     Indication: DIFFUSE LARGE B-CELL LYMPHOMA STAGE IV
     Route: 065
     Dates: start: 20061016
  10. ETOPOSIDE [Suspect]
     Route: 065
     Dates: start: 20061019
  11. ETOPOSIDE [Suspect]
     Route: 065
     Dates: start: 20061020
  12. ETOPOSIDE [Suspect]
     Route: 065
     Dates: start: 20061129
  13. CORDARONE [Concomitant]
  14. IFOSFAMIDE [Suspect]
     Route: 042
     Dates: start: 20061109
  15. RITUXIMAB [Suspect]
     Route: 065
     Dates: start: 20061018
  16. CARBOPLATIN [Suspect]
     Indication: DIFFUSE LARGE B-CELL LYMPHOMA STAGE IV
     Route: 065
     Dates: start: 20061019
  17. COMBIVENT [Concomitant]
  18. IFOSFAMIDE [Suspect]
     Route: 042
     Dates: start: 20061130
  19. CARBOPLATIN [Suspect]
     Route: 065
     Dates: start: 20061109
  20. ETOPOSIDE [Suspect]
     Route: 065
     Dates: start: 20061130
  21. PEGFILGRASTIM [Suspect]
     Indication: DIFFUSE LARGE B-CELL LYMPHOMA STAGE IV
     Dosage: 6000 UG/DAY
     Route: 065
  22. RITUXIMAB [Suspect]
     Route: 065
     Dates: start: 20061129
  23. ETOPOSIDE [Suspect]
     Route: 065
     Dates: start: 20061109
  24. ETOPOSIDE [Suspect]
     Route: 065
     Dates: start: 20061110
  25. ETOPOSIDE [Suspect]
     Route: 065
     Dates: start: 20061201
  26. CARBOPLATIN [Suspect]
     Route: 065
     Dates: start: 20061130

REACTIONS (1)
  - ACUTE MYELOID LEUKAEMIA [None]
